FAERS Safety Report 18506349 (Version 2)
Quarter: 2020Q4

REPORT INFORMATION
  Report Type: Spontaneous
  Country: US (occurrence: US)
  Receive Date: 20201116
  Receipt Date: 20201216
  Transmission Date: 20210114
  Serious: Yes (Other)
  Sender: FDA-Public Use
  Company Number: US-PFIZER INC-2020445710

PATIENT
  Age: 64 Year
  Sex: Female

DRUGS (2)
  1. XELJANZ XR [Suspect]
     Active Substance: TOFACITINIB CITRATE
     Indication: PSORIATIC ARTHROPATHY
  2. XELJANZ XR [Suspect]
     Active Substance: TOFACITINIB CITRATE
     Indication: RHEUMATOID ARTHRITIS
     Dosage: 11 MG, 1X/DAY
     Route: 048
     Dates: start: 2019

REACTIONS (12)
  - Back pain [Unknown]
  - Product dose omission issue [Unknown]
  - Flatulence [Unknown]
  - Decreased immune responsiveness [Recovering/Resolving]
  - Condition aggravated [Unknown]
  - Abdominal distension [Unknown]
  - COVID-19 [Unknown]
  - Carotid artery occlusion [Unknown]
  - Viral infection [Unknown]
  - Pain in extremity [Unknown]
  - Arthralgia [Unknown]
  - Intentional dose omission [Unknown]

NARRATIVE: CASE EVENT DATE: 20201117
